FAERS Safety Report 5986460-3 (Version None)
Quarter: 2008Q4

REPORT INFORMATION
  Report Type: 
  Country: None (occurrence: None)
  Receive Date: 20081209
  Receipt Date: 20080831
  Transmission Date: 20090506
  Serious: No
  Sender: FDA-Public Use
  Company Number: US-AMGEN-KDL305170

PATIENT
  Sex: Female

DRUGS (2)
  1. ENBREL [Suspect]
     Indication: RHEUMATOID ARTHRITIS
     Route: 058
     Dates: start: 20040903
  2. METHOTREXATE [Concomitant]
     Route: 048

REACTIONS (4)
  - CYST [None]
  - FOLLICULITIS [None]
  - IRITIS [None]
  - THERAPEUTIC RESPONSE DECREASED [None]
